FAERS Safety Report 5570412-1 (Version None)
Quarter: 2007Q4

REPORT INFORMATION
  Report Type: 
  Country: None (occurrence: None)
  Receive Date: 20071221
  Receipt Date: 20071212
  Transmission Date: 20080405
  Serious: Yes (Other)
  Sender: FDA-Public Use
  Company Number: PHFR2007GB03613

PATIENT
  Age: 49 Year
  Sex: Male
  Weight: 74.6 kg

DRUGS (1)
  1. ZOMETA [Suspect]
     Indication: PROPHYLAXIS
     Dosage: 4 MG, QMO
     Route: 042
     Dates: start: 20050204, end: 20070204

REACTIONS (4)
  - GINGIVAL INFECTION [None]
  - OSTEOMYELITIS [None]
  - TOOTH EXTRACTION [None]
  - WOUND DEBRIDEMENT [None]
